FAERS Safety Report 25246267 (Version 1)
Quarter: 2025Q2

REPORT INFORMATION
  Report Type: Spontaneous
  Country: TR (occurrence: TR)
  Receive Date: 20250428
  Receipt Date: 20250428
  Transmission Date: 20250717
  Serious: Yes (Death, Other)
  Sender: AMGEN
  Company Number: TR-AMGEN-TURSP2025079740

PATIENT

DRUGS (6)
  1. NEUPOGEN [Suspect]
     Active Substance: FILGRASTIM
     Indication: Prophylaxis
     Dosage: 0.01 MILLIGRAM/KILOGRAM, QD
     Route: 040
  2. CYCLOPHOSPHAMIDE [Concomitant]
     Active Substance: CYCLOPHOSPHAMIDE
     Dosage: 1500 MILLIGRAM/SQ. METER, QD,FOR 4 DAYS,  CYCLOPHOSPHAMIDE GIVEN IN 500 ML OF NORMAL SALINE AS A 1 -
     Route: 040
  3. ETOPOSIDE [Concomitant]
     Active Substance: ETOPOSIDE
     Dosage: 300 MILLIGRAM/SQ. METER, QD FOR 4 DAYS OVER 2 HRS
     Route: 065
  4. MESNA [Concomitant]
     Active Substance: MESNA
     Route: 040
  5. VANCOMYCIN [Concomitant]
     Active Substance: VANCOMYCIN
  6. AMPHOTERICIN B [Concomitant]
     Active Substance: AMPHOTERICIN B

REACTIONS (15)
  - Sepsis [Fatal]
  - Haemorrhage intracranial [Fatal]
  - Hodgkin^s disease [Unknown]
  - Cystitis haemorrhagic [Unknown]
  - Arrhythmia [Unknown]
  - Febrile neutropenia [Unknown]
  - Hepatotoxicity [Unknown]
  - Non-Hodgkin^s lymphoma recurrent [Unknown]
  - Nephropathy toxic [Unknown]
  - Therapy non-responder [Unknown]
  - Therapy partial responder [Unknown]
  - Nausea [Unknown]
  - Vomiting [Unknown]
  - Diarrhoea [Unknown]
  - Rash [Unknown]
